FAERS Safety Report 8301798-2 (Version None)
Quarter: 2012Q2

REPORT INFORMATION
  Report Type: 
  Country: None (occurrence: None)
  Receive Date: 20120420
  Receipt Date: 20120418
  Transmission Date: 20120825
  Serious: Yes (Death)
  Sender: FDA-Public Use
  Company Number: US-JNJFOC-20120407126

PATIENT
  Sex: Female

DRUGS (29)
  1. DOXORUBICIN HCL [Suspect]
     Route: 042
  2. DOXORUBICIN HCL [Suspect]
     Route: 042
  3. DOXORUBICIN HCL [Suspect]
     Route: 042
  4. DOXORUBICIN HCL [Suspect]
     Route: 042
  5. DOXORUBICIN HCL [Suspect]
     Route: 042
  6. PACLITAXEL [Suspect]
     Route: 042
  7. PACLITAXEL [Suspect]
     Route: 042
  8. NEUPOGEN [Concomitant]
     Route: 065
  9. DOXORUBICIN HCL [Suspect]
     Route: 042
  10. DOXORUBICIN HCL [Suspect]
     Route: 042
  11. CYCLOPHOSPHAMIDE [Suspect]
     Indication: BREAST CANCER
     Route: 048
  12. PACLITAXEL [Suspect]
     Route: 042
  13. DOXORUBICIN HCL [Suspect]
     Route: 042
  14. DOXORUBICIN HCL [Suspect]
     Route: 042
  15. DOXORUBICIN HCL [Suspect]
     Route: 042
  16. PACLITAXEL [Suspect]
     Route: 042
  17. PACLITAXEL [Suspect]
     Route: 042
  18. PACLITAXEL [Suspect]
     Route: 042
  19. PACLITAXEL [Suspect]
     Route: 042
  20. PACLITAXEL [Suspect]
     Route: 042
  21. PACLITAXEL [Suspect]
     Indication: BREAST CANCER
     Route: 042
  22. PACLITAXEL [Suspect]
     Route: 042
  23. PACLITAXEL [Suspect]
     Route: 042
  24. DOXORUBICIN HCL [Suspect]
     Indication: BREAST CANCER
     Route: 042
  25. DOXORUBICIN HCL [Suspect]
     Route: 042
  26. DOXORUBICIN HCL [Suspect]
     Route: 042
  27. DOXORUBICIN HCL [Suspect]
     Route: 042
  28. DOXORUBICIN HCL [Suspect]
     Route: 042
  29. PACLITAXEL [Suspect]
     Route: 042

REACTIONS (1)
  - HEPATIC FAILURE [None]
